FAERS Safety Report 13521801 (Version 13)
Quarter: 2021Q2

REPORT INFORMATION
  Report Type: Report from Study
  Country: CO (occurrence: CO)
  Receive Date: 20170508
  Receipt Date: 20210527
  Transmission Date: 20210716
  Serious: Yes (Hospitalization, Other)
  Sender: FDA-Public Use
  Company Number: CO-AMGEN-COLSL2017068210

PATIENT
  Age: 85 Year
  Sex: Male

DRUGS (7)
  1. NPLATE [Suspect]
     Active Substance: ROMIPLOSTIM
     Dosage: 250 MICROGRAM, Q2WK
     Route: 058
  2. NPLATE [Suspect]
     Active Substance: ROMIPLOSTIM
     Dosage: 250 MICROGRAM, QMO
     Route: 058
  3. NPLATE [Suspect]
     Active Substance: ROMIPLOSTIM
     Indication: IMMUNE THROMBOCYTOPENIA
     Dosage: UNK UNK, Q2WK
     Route: 058
     Dates: start: 20150716
  4. NPLATE [Suspect]
     Active Substance: ROMIPLOSTIM
     Dosage: 70 MICROGRAM, QWK
     Route: 058
     Dates: start: 20160301, end: 2021
  5. NPLATE [Suspect]
     Active Substance: ROMIPLOSTIM
     Dosage: UNK, OTHER
     Route: 058
  6. NPLATE [Suspect]
     Active Substance: ROMIPLOSTIM
     Dosage: 70 MICROGRAM
     Route: 058
  7. NPLATE [Suspect]
     Active Substance: ROMIPLOSTIM
     Dosage: 70 MICROGRAM, QWK
     Route: 058
     Dates: start: 20210513

REACTIONS (3)
  - Off label use [Not Recovered/Not Resolved]
  - Thrombocytosis [Not Recovered/Not Resolved]
  - Carotid artery occlusion [Recovered/Resolved]

NARRATIVE: CASE EVENT DATE: 20170405
